FAERS Safety Report 14732847 (Version 3)
Quarter: 2019Q3

REPORT INFORMATION
  Report Type: Spontaneous
  Country: US (occurrence: US)
  Receive Date: 20180409
  Receipt Date: 20190709
  Transmission Date: 20191004
  Serious: No
  Sender: FDA-Public Use
  Company Number: US-PFIZER INC-2018141304

PATIENT
  Age: 56 Year
  Sex: Female
  Weight: 76.2 kg

DRUGS (2)
  1. LYRICA [Suspect]
     Active Substance: PREGABALIN
     Dosage: 100 MG, 3X/DAY
  2. LYRICA [Suspect]
     Active Substance: PREGABALIN
     Dosage: 150 MG, 1X/DAY; [TAKE 1 CAPSULE BY ORAL ROUTE EVERY 24 HOURS]
     Route: 048

REACTIONS (5)
  - Off label use [Unknown]
  - Fatigue [Unknown]
  - Intentional product misuse [Unknown]
  - Somnolence [Unknown]
  - Hypersomnia [Unknown]
